FAERS Safety Report 6202736-9 (Version None)
Quarter: 2009Q2

REPORT INFORMATION
  Report Type: 
  Country: None (occurrence: None)
  Receive Date: 20090526
  Receipt Date: 20090521
  Transmission Date: 20091009
  Serious: Yes (Death)
  Sender: FDA-Public Use
  Company Number: PHHY2008MX23399

PATIENT
  Age: 70 Year
  Sex: Female

DRUGS (3)
  1. ACLASTA [Suspect]
     Indication: OSTEOPOROSIS
     Dosage: 5 MG/ 100 ML
     Dates: start: 20070701
  2. CHEMOTHERAPEUTICS NOS [Concomitant]
  3. RADIOTHERAPY [Concomitant]

REACTIONS (2)
  - METASTASIS [None]
  - UTERINE CANCER [None]
